FAERS Safety Report 7999796-1 (Version None)
Quarter: 2011Q4

REPORT INFORMATION
  Report Type: 
  Country: None (occurrence: None)
  Receive Date: 20111222
  Receipt Date: 20111216
  Transmission Date: 20120403
  Serious: Yes (Other)
  Sender: FDA-Public Use
  Company Number: US-BIOGENIDEC-2010BI045328

PATIENT
  Age: 22 Year
  Sex: Female

DRUGS (8)
  1. AVONEX [Suspect]
     Indication: MULTIPLE SCLEROSIS
     Route: 030
     Dates: start: 20091101, end: 20101229
  2. FOLIC ACID [Concomitant]
  3. UNISOM [Concomitant]
  4. SOLU-MEDROL [Concomitant]
     Indication: MULTIPLE SCLEROSIS
  5. VITAMIN AND MINERAL PRENATAL SUPPLEMENT W/ FOLIC ACID CAP [Concomitant]
     Indication: PREGNANCY
  6. RIBOFLAVIN [Concomitant]
  7. PAXIL [Concomitant]
  8. MAGNESIUM [Concomitant]

REACTIONS (2)
  - HYPEREMESIS GRAVIDARUM [None]
  - BREECH PRESENTATION [None]
